FAERS Safety Report 12866444 (Version 2)
Quarter: 2017Q3

REPORT INFORMATION
  Report Type: Spontaneous
  Country: US (occurrence: US)
  Receive Date: 20161020
  Receipt Date: 20170928
  Transmission Date: 20171127
  Serious: No
  Sender: FDA-Public Use
  Company Number: US-SA-2016SA105824

PATIENT
  Age: 53 Year
  Sex: Female

DRUGS (1)
  1. AUBAGIO [Suspect]
     Active Substance: TERIFLUNOMIDE
     Indication: MULTIPLE SCLEROSIS
     Route: 048
     Dates: start: 20150820

REACTIONS (4)
  - Insomnia [Unknown]
  - Vomiting [Unknown]
  - Hypoaesthesia [Unknown]
  - Nausea [Unknown]

NARRATIVE: CASE EVENT DATE: 201508
